FAERS Safety Report 5282399-X (Version None)
Quarter: 2007Q1

REPORT INFORMATION
  Report Type: 
  Country: None (occurrence: None)
  Receive Date: 20061226
  Receipt Date: 20060802
  Transmission Date: 20070707
  Serious: No
  Sender: FDA-Public Use
  Company Number: PHEH2006US09868

PATIENT
  Age: 67 Year
  Sex: Male

DRUGS (4)
  1. ENABLEX [Suspect]
     Dosage: 15 MG, QD
     Dates: start: 20051201
  2. ENALAPRIL MALEATE [Concomitant]
  3. HYTRIN [Concomitant]
  4. OXYTROL [Concomitant]

REACTIONS (1)
  - DRUG INEFFECTIVE [None]
